FAERS Safety Report 26010542 (Version 1)
Quarter: 2025Q4

REPORT INFORMATION
  Report Type: Spontaneous
  Country: TW (occurrence: TW)
  Receive Date: 20251107
  Receipt Date: 20251107
  Transmission Date: 20260118
  Serious: Yes (Death, Other)
  Sender: AMGEN
  Company Number: TW-AMGEN-TWNSP2025217706

PATIENT

DRUGS (2)
  1. PANITUMUMAB [Suspect]
     Active Substance: PANITUMUMAB
     Indication: Colorectal cancer metastatic
     Dosage: UNK UNK, CYCLICAL (FIRST-LINE TARGETED THERAPY)
     Route: 065
  2. BEVACIZUMAB [Suspect]
     Active Substance: BEVACIZUMAB
     Indication: Colorectal cancer metastatic
     Dosage: UNK UNK, CYCLICAL (FIRST-LINE TARGETED THERAPY)
     Route: 065

REACTIONS (4)
  - Death [Fatal]
  - Tumour perforation [Unknown]
  - Intestinal obstruction [Unknown]
  - Adverse event [Unknown]
